FAERS Safety Report 5839149-5 (Version None)
Quarter: 2008Q3

REPORT INFORMATION
  Report Type: 
  Country: None (occurrence: None)
  Receive Date: 20080808
  Receipt Date: 20080729
  Transmission Date: 20090109
  Serious: Yes (Disabling, Other)
  Sender: FDA-Public Use
  Company Number: PT-PFIZER INC-2008051970

PATIENT
  Age: 34 Year
  Sex: Male
  Weight: 63 kg

DRUGS (1)
  1. CHANTIX [Suspect]
     Indication: SMOKING CESSATION THERAPY
     Route: 048

REACTIONS (4)
  - AGITATION [None]
  - NEGATIVE THOUGHTS [None]
  - NIGHTMARE [None]
  - RESTLESSNESS [None]
